FAERS Safety Report 25020246 (Version 1)
Quarter: 2025Q1

REPORT INFORMATION
  Report Type: Spontaneous
  Country: US (occurrence: US)
  Receive Date: 20250227
  Receipt Date: 20250227
  Transmission Date: 20250409
  Serious: No
  Sender: DR REDDYS
  Company Number: US-DRL-USA-USA/2025/02/003021

PATIENT
  Age: 59 Year
  Sex: Female

DRUGS (3)
  1. CETIRIZINE [Suspect]
     Active Substance: CETIRIZINE HYDROCHLORIDE
     Indication: Eosinophilic cellulitis
  2. CLOBETASOL [Concomitant]
     Active Substance: CLOBETASOL
     Indication: Eosinophilic cellulitis
     Route: 061
  3. TACROLIMUS [Concomitant]
     Active Substance: TACROLIMUS
     Indication: Eosinophilic cellulitis

REACTIONS (1)
  - Drug ineffective for unapproved indication [Unknown]
